FAERS Safety Report 26138087 (Version 1)
Quarter: 2025Q4

REPORT INFORMATION
  Report Type: Spontaneous
  Country: US (occurrence: US)
  Receive Date: 20251210
  Receipt Date: 20251210
  Transmission Date: 20260118
  Serious: No
  Sender: ABBVIE
  Company Number: US-ABBVIE-6579608

PATIENT
  Age: 76 Year
  Sex: Female
  Weight: 68 kg

DRUGS (9)
  1. HUMIRA [Suspect]
     Active Substance: ADALIMUMAB
     Indication: Crohn^s disease
     Dosage: STRENGTH 40 MG
     Route: 058
     Dates: start: 202511
  2. HUMIRA [Suspect]
     Active Substance: ADALIMUMAB
     Dosage: STRENGTH 40 MG
     Route: 058
     Dates: start: 2025, end: 202511
  3. FLUOXETINE [Concomitant]
     Active Substance: FLUOXETINE HYDROCHLORIDE
     Indication: Depression
  4. LEVOCETIRIZINE [Concomitant]
     Active Substance: LEVOCETIRIZINE
     Indication: Hypersensitivity
  5. ATORVASTATIN [Concomitant]
     Active Substance: ATORVASTATIN
     Indication: Blood cholesterol increased
  6. OMEPRAZOLE [Concomitant]
     Active Substance: OMEPRAZOLE
     Indication: Dyspepsia
  7. MONTELUKAST [Concomitant]
     Active Substance: MONTELUKAST
     Indication: Hypersensitivity
  8. ALDACTONE [Concomitant]
     Active Substance: SPIRONOLACTONE
     Indication: Product used for unknown indication
  9. LEVOTHYROXINE [Concomitant]
     Active Substance: LEVOTHYROXINE
     Indication: Thyroid disorder

REACTIONS (4)
  - Inflammatory marker increased [Unknown]
  - Diarrhoea [Recovered/Resolved]
  - Therapeutic response shortened [Not Recovered/Not Resolved]
  - Diarrhoea [Recovering/Resolving]

NARRATIVE: CASE EVENT DATE: 20250101
